FAERS Safety Report 24599682 (Version 1)
Quarter: 2024Q4

REPORT INFORMATION
  Report Type: Spontaneous
  Country: US (occurrence: US)
  Receive Date: 20241110
  Receipt Date: 20241110
  Transmission Date: 20250115
  Serious: No
  Sender: SANOFI AVENTIS
  Company Number: US-SA-2024SA313367

PATIENT
  Sex: Male
  Weight: 55.7 kg

DRUGS (1)
  1. DUPIXENT [Suspect]
     Active Substance: DUPILUMAB
     Indication: Asthma
     Dosage: 200.000MG QOW
     Route: 058

REACTIONS (2)
  - Scratch [Unknown]
  - Pruritus [Unknown]
